FAERS Safety Report 23857020 (Version 1)
Quarter: 2024Q2

REPORT INFORMATION
  Report Type: Spontaneous
  Country: DE (occurrence: DE)
  Receive Date: 20240515
  Receipt Date: 20240515
  Transmission Date: 20240716
  Serious: Yes (Other)
  Sender: FDA-Public Use
  Company Number: DE-ALKEM LABORATORIES LIMITED-DE-ALKEM-2024-09679

PATIENT
  Age: 70 Year
  Sex: Female
  Weight: 56 kg

DRUGS (16)
  1. LACOSAMIDE [Suspect]
     Active Substance: LACOSAMIDE
     Indication: Generalised tonic-clonic seizure
     Dosage: 200 MILLIGRAM, BID (EVERY 0.5 DAY)
     Route: 048
  2. QUETIAPINE FUMARATE [Suspect]
     Active Substance: QUETIAPINE FUMARATE
     Indication: Anxiety disorder
     Dosage: 25 MILLIGRAM, QD (EVERY 1 DAY)
     Route: 048
  3. LEVETIRACETAM [Interacting]
     Active Substance: LEVETIRACETAM
     Indication: Generalised tonic-clonic seizure
     Dosage: 1250 MILLIGRAM, BID (EVERY 0.5 DAY)
     Route: 048
  4. BISOPROLOL [Interacting]
     Active Substance: BISOPROLOL\BISOPROLOL FUMARATE
     Indication: Hypertension
     Dosage: 2.5 MILLIGRAM, QD (EVERY 1 DAY)
     Route: 048
  5. BROMAZEPAM [Suspect]
     Active Substance: BROMAZEPAM
     Indication: Drug dependence
     Dosage: 6 MILLIGRAM, QD (EVERY 1 DAY)
     Route: 048
  6. BROMAZEPAM [Suspect]
     Active Substance: BROMAZEPAM
     Indication: Anxiety
  7. DOXYLAMINE [Interacting]
     Active Substance: DOXYLAMINE
     Indication: Product used for unknown indication
     Dosage: 25 MILLIGRAM, QD (EVERY 1 DAY)
     Route: 048
  8. TRIMIPRAMINE [Suspect]
     Active Substance: TRIMIPRAMINE
     Indication: Depression
     Dosage: 25 MILLIGRAM EVERY 0.33 DAY
     Route: 048
  9. Alexandrian Senna tea [Concomitant]
     Indication: Product used for unknown indication
     Dosage: UNK, PRN (HERBAL TEA) AS NECESSARY
     Route: 048
  10. AMLODIPINE BESYLATE [Concomitant]
     Active Substance: AMLODIPINE BESYLATE
     Indication: Hypertension
     Dosage: 5 MILLIGRAM, QD (EVERY 1 DAY)
     Route: 048
  11. APIXABAN [Concomitant]
     Active Substance: APIXABAN
     Indication: Product used for unknown indication
     Dosage: 5 MILLIGRAM, BID (EVERY 0.5 DAY)
     Route: 048
  12. Ferrous Iron [Concomitant]
     Indication: Product used for unknown indication
     Dosage: 100 MILLIGRAM EVERY 2 DAY
     Route: 048
  13. FOLIC ACID [Concomitant]
     Active Substance: FOLIC ACID
     Indication: Product used for unknown indication
     Dosage: 5 MILLIGRAM, QD (EVERY 1 DAY)
     Route: 048
  14. PANTOPRAZOLE SODIUM [Concomitant]
     Active Substance: PANTOPRAZOLE SODIUM
     Indication: Product used for unknown indication
     Dosage: 40 MILLIGRAM, QD (EVERY 1 DAY)
     Route: 048
  15. RAMIPRIL [Concomitant]
     Active Substance: RAMIPRIL
     Indication: Hypertension
     Dosage: 5 MILLIGRAM, BID (EVERY 0.5 DAY)
     Route: 048
  16. TORSEMIDE [Concomitant]
     Active Substance: TORSEMIDE
     Indication: Hypertension
     Dosage: 10 MILLIGRAM, QD (EVERY 1 DAY)
     Route: 048

REACTIONS (8)
  - Delirium [Unknown]
  - Drug interaction [Unknown]
  - Bradycardia [Unknown]
  - Apathy [Unknown]
  - General physical health deterioration [Unknown]
  - Gait disturbance [Unknown]
  - Fatigue [Unknown]
  - Fall [Unknown]
